FAERS Safety Report 12455600 (Version 1)
Quarter: 2016Q2

REPORT INFORMATION
  Report Type: Report from Study
  Country: CA (occurrence: CA)
  Receive Date: 20160610
  Receipt Date: 20160610
  Transmission Date: 20160815
  Serious: Yes (Hospitalization, Other)
  Sender: FDA-Public Use
  Company Number: CA-BAYER-2016-088437

PATIENT
  Age: 60 Year
  Sex: Female

DRUGS (19)
  1. ADEMPAS [Suspect]
     Active Substance: RIOCIGUAT
     Indication: PULMONARY ARTERIAL HYPERTENSION
     Dosage: UNK
     Dates: start: 20160502
  2. ERGOCALCIFEROL. [Concomitant]
     Active Substance: ERGOCALCIFEROL
     Dosage: UNK
  3. ADEMPAS [Suspect]
     Active Substance: RIOCIGUAT
     Indication: PULMONARY ARTERIAL HYPERTENSION
     Dosage: 2.5 MG, TID
  4. DOMPERIDONE [Concomitant]
     Active Substance: DOMPERIDONE
     Dosage: UNK
  5. COLCHICINE. [Concomitant]
     Active Substance: COLCHICINE
     Dosage: UNK
  6. ADEMPAS [Suspect]
     Active Substance: RIOCIGUAT
     Indication: PULMONARY ARTERIAL HYPERTENSION
     Dosage: 1.5 MG, TID
     Route: 048
  7. ADEMPAS [Suspect]
     Active Substance: RIOCIGUAT
     Indication: PULMONARY ARTERIAL HYPERTENSION
     Dosage: 2 MG, TID
     Route: 048
     Dates: end: 201606
  8. ELTROXIN [Concomitant]
     Active Substance: LEVOTHYROXINE
     Dosage: UNK
  9. WARFARIN [Concomitant]
     Active Substance: WARFARIN
     Dosage: UNK
  10. FUROSEMIDE. [Concomitant]
     Active Substance: FUROSEMIDE
     Dosage: UNK
  11. SPIRONOLACTONE. [Concomitant]
     Active Substance: SPIRONOLACTONE
     Dosage: UNK
  12. PREDNISONE. [Concomitant]
     Active Substance: PREDNISONE
     Dosage: UNK
  13. LASIX [Concomitant]
     Active Substance: FUROSEMIDE
  14. LANSOPRAZOLE. [Concomitant]
     Active Substance: LANSOPRAZOLE
     Dosage: UNK
  15. CAPTOPRIL. [Concomitant]
     Active Substance: CAPTOPRIL
     Dosage: UNK
  16. MACITENTAN [Concomitant]
     Active Substance: MACITENTAN
     Dosage: UNK
  17. ADEMPAS [Suspect]
     Active Substance: RIOCIGUAT
     Indication: PULMONARY ARTERIAL HYPERTENSION
     Dosage: 1 MG, TID
     Route: 048
  18. DOXYCLINE [Concomitant]
     Active Substance: DOXYCYCLINE
     Dosage: UNK
  19. DUVOID [Concomitant]
     Active Substance: BETHANECHOL CHLORIDE
     Dosage: UNK

REACTIONS (14)
  - Headache [None]
  - Dizziness [Not Recovered/Not Resolved]
  - Hypotension [Not Recovered/Not Resolved]
  - Hypotension [Recovering/Resolving]
  - Dyspnoea [None]
  - Oxygen saturation decreased [Not Recovered/Not Resolved]
  - Somnolence [Not Recovered/Not Resolved]
  - Insomnia [None]
  - Nausea [None]
  - Peripheral swelling [Not Recovered/Not Resolved]
  - Feeling drunk [Not Recovered/Not Resolved]
  - Intestinal obstruction [Not Recovered/Not Resolved]
  - Dyspepsia [Not Recovered/Not Resolved]
  - Vomiting [None]

NARRATIVE: CASE EVENT DATE: 2016
